FAERS Safety Report 25110997 (Version 1)
Quarter: 2025Q1

REPORT INFORMATION
  Report Type: Spontaneous
  Country: VN (occurrence: VN)
  Receive Date: 20250324
  Receipt Date: 20250324
  Transmission Date: 20250409
  Serious: Yes (Hospitalization)
  Sender: JOHNSON AND JOHNSON
  Company Number: VN-JNJFOC-20250347485

PATIENT
  Age: 59 Year
  Sex: Female

DRUGS (3)
  1. DARZALEX [Suspect]
     Active Substance: DARATUMUMAB
     Indication: Plasma cell myeloma
     Route: 065
  2. DEXAMETHASONE [Suspect]
     Active Substance: DEXAMETHASONE
     Indication: Plasma cell myeloma
     Route: 065
  3. LENALIDOMIDE [Suspect]
     Active Substance: LENALIDOMIDE
     Indication: Plasma cell myeloma
     Route: 065

REACTIONS (5)
  - Anaemia [Unknown]
  - Lymphadenopathy [Unknown]
  - Peripheral swelling [Recovering/Resolving]
  - Pain in extremity [Unknown]
  - Spinal pain [Unknown]

NARRATIVE: CASE EVENT DATE: 20241201
